FAERS Safety Report 4282668-6 (Version None)
Quarter: 2004Q1

REPORT INFORMATION
  Report Type: 
  Country: None (occurrence: None)
  Receive Date: 20040129
  Receipt Date: 20040120
  Transmission Date: 20041129
  Serious: Yes (Disabling)
  Sender: FDA-Public Use
  Company Number: US-JNJFOC-20040103975

PATIENT
  Age: 32 Year
  Sex: Female

DRUGS (1)
  1. TOPAMAX [Suspect]
     Indication: EPILEPSY
     Dates: start: 20030901

REACTIONS (5)
  - ARTHRITIS [None]
  - GAIT DISTURBANCE [None]
  - MYALGIA [None]
  - PARALYSIS [None]
  - SPINAL OSTEOARTHRITIS [None]
